FAERS Safety Report 25370779 (Version 7)
Quarter: 2025Q4

REPORT INFORMATION
  Report Type: Report from Study
  Country: US (occurrence: US)
  Receive Date: 20250528
  Receipt Date: 20251125
  Transmission Date: 20260118
  Serious: Yes (Hospitalization, Other)
  Sender: JAZZ
  Company Number: US-JAZZ PHARMACEUTICALS-2025-US-008695

PATIENT
  Age: 51 Year
  Sex: Female

DRUGS (15)
  1. EPIDIOLEX [Suspect]
     Active Substance: CANNABIDIOL
     Indication: Seizure
     Dosage: 17 MILLIGRAM/KILOGRAM, BID
     Dates: start: 20241201
  2. EPIDIOLEX [Suspect]
     Active Substance: CANNABIDIOL
     Indication: Lennox-Gastaut syndrome
     Dosage: 20 MILLIGRAM/KILOGRAM, BID
  3. EPIDIOLEX [Suspect]
     Active Substance: CANNABIDIOL
     Dosage: 5.5 MILLILITER, BID
  4. EPIDIOLEX [Suspect]
     Active Substance: CANNABIDIOL
     Dosage: 6.5 MILLILITER, BID
     Dates: start: 20250305
  5. EPIDIOLEX [Suspect]
     Active Substance: CANNABIDIOL
     Dosage: 4.5 MILLILITER, BID
     Dates: start: 20250728
  6. EPIDIOLEX [Suspect]
     Active Substance: CANNABIDIOL
     Dosage: 13 MILLIGRAM/KILOGRAM/DAY, BID
  7. EPIDIOLEX [Suspect]
     Active Substance: CANNABIDIOL
     Dosage: 7 MILLIGRAM/KILOGRAM, QD
     Dates: start: 20241201
  8. CALCIUM [Concomitant]
     Active Substance: CALCIUM
     Indication: Product used for unknown indication
  9. HYDROXYZINE HYDROCHLORIDE [Concomitant]
     Active Substance: HYDROXYZINE HYDROCHLORIDE
     Indication: Product used for unknown indication
  10. VALTOCO [Concomitant]
     Active Substance: DIAZEPAM
     Indication: Product used for unknown indication
  11. VITAMIN D3 [Concomitant]
     Active Substance: CHOLECALCIFEROL
     Indication: Product used for unknown indication
     Dosage: CAPSULE 5000UNIT
  12. ROBAXIN [Concomitant]
     Active Substance: METHOCARBAMOL
     Indication: Product used for unknown indication
  13. OXYCODONE [Concomitant]
     Active Substance: OXYCODONE
     Indication: Product used for unknown indication
  14. IBRANCE [Concomitant]
     Active Substance: PALBOCICLIB
     Indication: Product used for unknown indication
     Dosage: UNK
  15. ZOLEDRONIC ACID [Concomitant]
     Active Substance: ZOLEDRONIC ACID
     Indication: Product used for unknown indication
     Dosage: UNK

REACTIONS (24)
  - Hip fracture [Not Recovered/Not Resolved]
  - Pelvic fracture [Unknown]
  - Neoplasm malignant [Not Recovered/Not Resolved]
  - Epilepsy [Unknown]
  - Breast cancer metastatic [Not Recovered/Not Resolved]
  - Malignant neoplasm of spinal cord [Not Recovered/Not Resolved]
  - Bone cancer [Not Recovered/Not Resolved]
  - Seizure [Not Recovered/Not Resolved]
  - Seizure [Not Recovered/Not Resolved]
  - Seizure cluster [Recovering/Resolving]
  - Fall [Unknown]
  - Joint injury [Unknown]
  - Diarrhoea [Not Recovered/Not Resolved]
  - Diarrhoea [Not Recovered/Not Resolved]
  - Diarrhoea [Not Recovered/Not Resolved]
  - Somnolence [Unknown]
  - Illness [Unknown]
  - Pyrexia [Not Recovered/Not Resolved]
  - Stomatitis [Not Recovered/Not Resolved]
  - Weight decreased [Not Recovered/Not Resolved]
  - Oral discomfort [Not Recovered/Not Resolved]
  - Product dose omission issue [Unknown]
  - Product dose omission issue [Unknown]
  - Product dose omission issue [Unknown]

NARRATIVE: CASE EVENT DATE: 20250626
